FAERS Safety Report 7399951-8 (Version None)
Quarter: 2011Q2

REPORT INFORMATION
  Report Type: 
  Country: None (occurrence: None)
  Receive Date: 20110407
  Receipt Date: 20110331
  Transmission Date: 20111010
  Serious: Yes (Hospitalization)
  Sender: FDA-Public Use
  Company Number: KR-BAYER-2011-027623

PATIENT
  Sex: Female
  Weight: 49 kg

DRUGS (3)
  1. CISPLATIN [Suspect]
     Indication: GASTRIC CANCER
     Dosage: 85 MG, QD
     Dates: start: 20110323
  2. SORAFENIB (RAF KINASE INHIBITOR) [Suspect]
     Indication: GASTRIC CANCER
     Dosage: 800 MG, UNK
     Dates: start: 20110323, end: 20110329
  3. CAPECITABINE [Suspect]
     Indication: GASTRIC CANCER
     Dosage: 32200 MG, UNK
     Dates: start: 20110323, end: 20110329

REACTIONS (1)
  - CEREBRAL INFARCTION [None]
